FAERS Safety Report 4727671-4 (Version None)
Quarter: 2005Q3

REPORT INFORMATION
  Report Type: 
  Country: None (occurrence: None)
  Receive Date: 20050725
  Receipt Date: 20050601
  Transmission Date: 20060218
  Serious: No
  Sender: FDA-Public Use
  Company Number: CART-10402

PATIENT
  Age: 48 Year
  Sex: Male

DRUGS (2)
  1. CARTICEL [Suspect]
     Indication: ARTHROPATHY
     Dosage: 1 NA ONCE IS
     Dates: start: 19951002, end: 19951002
  2. CARTICEL [Suspect]
     Indication: ARTHROPATHY
     Dosage: 1 NA ONCE IS
     Dates: start: 19991101, end: 19991101

REACTIONS (11)
  - ADHESION [None]
  - ARTHROFIBROSIS [None]
  - CHONDROPATHY [None]
  - DEFORMITY [None]
  - DISEASE PROGRESSION [None]
  - GRAFT COMPLICATION [None]
  - HYPERTROPHY [None]
  - MENISCUS LESION [None]
  - PAIN [None]
  - SURGICAL PROCEDURE REPEATED [None]
  - SUTURE RELATED COMPLICATION [None]
